FAERS Safety Report 23041494 (Version 1)
Quarter: 2023Q4

REPORT INFORMATION
  Report Type: Spontaneous
  Country: US (occurrence: US)
  Receive Date: 20231007
  Receipt Date: 20231007
  Transmission Date: 20240109
  Serious: Yes (Other)
  Sender: FDA-Public Use
  Company Number: US-drreddys-LIT/USA/23/0178836

PATIENT
  Age: 46 Year
  Sex: Male

DRUGS (5)
  1. DEXAMETHASONE [Suspect]
     Active Substance: DEXAMETHASONE
     Indication: B-cell lymphoma stage II
     Dosage: BURST 40 MG/DAY FOR 4 DAYS
  2. DOXORUBICIN HYDROCHLORIDE [Suspect]
     Active Substance: DOXORUBICIN HYDROCHLORIDE
     Indication: B-cell lymphoma stage II
     Dosage: 1 CYCLE OF CHOP REGIMEN
  3. CYCLOPHOSPHAMIDE [Suspect]
     Active Substance: CYCLOPHOSPHAMIDE
     Indication: B-cell lymphoma stage II
     Dosage: 1 CYCLE OF CHOP REGIMEN
  4. VINCRISTINE [Suspect]
     Active Substance: VINCRISTINE
     Indication: B-cell lymphoma stage II
     Dosage: 1 CYCLE OF CHOP REGIMEN
  5. PREDNISONE [Suspect]
     Active Substance: PREDNISONE
     Indication: B-cell lymphoma stage II
     Dosage: 1 CYCLE OF CHOP REGIMEN

REACTIONS (3)
  - B-cell lymphoma refractory [Unknown]
  - Drug ineffective [Unknown]
  - Product use in unapproved indication [Unknown]
